FAERS Safety Report 12615733 (Version 2)
Quarter: 2016Q4

REPORT INFORMATION
  Report Type: Spontaneous
  Country: US (occurrence: US)
  Receive Date: 20160802
  Receipt Date: 20161103
  Transmission Date: 20170207
  Serious: No
  Sender: FDA-Public Use
  Company Number: US-IMPAX LABORATORIES, INC-2016-IPXL-00725

PATIENT
  Age: 69 Year
  Sex: Male
  Weight: 65 kg

DRUGS (2)
  1. RYTARY [Suspect]
     Active Substance: CARBIDOPA\LEVODOPA
     Indication: PARKINSON^S DISEASE
     Dosage: 61.25 MG/245 MG TAKE 3 CAPSULE 7AM; 2 CAPSULES 11AM, 2 CAPSULES 3PM, 2 CAPSULES 7PM, 3 CAPSULES 11PM
     Route: 048
  2. RYTARY [Suspect]
     Active Substance: CARBIDOPA\LEVODOPA
     Dosage: 23.75 MG/95MG TAKE 1 CAPSULE 11 AM, 1 CAPSULE 3PM, 1 CAPSULE 7PM
     Route: 048

REACTIONS (10)
  - Somnolence [Not Recovered/Not Resolved]
  - Aggression [Not Recovered/Not Resolved]
  - Dry mouth [Not Recovered/Not Resolved]
  - Hypotension [Not Recovered/Not Resolved]
  - Dental discomfort [Not Recovered/Not Resolved]
  - Dyskinesia [Not Recovered/Not Resolved]
  - Constipation [Not Recovered/Not Resolved]
  - Thinking abnormal [Not Recovered/Not Resolved]
  - Nausea [Not Recovered/Not Resolved]
  - Dizziness [Not Recovered/Not Resolved]

NARRATIVE: CASE EVENT DATE: 2015
